FAERS Safety Report 20535677 (Version 1)
Quarter: 2022Q1

REPORT INFORMATION
  Report Type: Spontaneous
  Country: DE (occurrence: DE)
  Receive Date: 20220302
  Receipt Date: 20220302
  Transmission Date: 20220424
  Serious: Yes (Other)
  Sender: FDA-Public Use
  Company Number: DE-JNJFOC-20211121956

PATIENT
  Age: 67 Year
  Sex: Male

DRUGS (3)
  1. ZYTIGA [Suspect]
     Active Substance: ABIRATERONE ACETATE
     Indication: Prostate cancer
     Dosage: DOSE AND STRENGTH: 11.25 MG (INJECTED INTO THE ABDOMEN)
     Route: 048
     Dates: start: 202008, end: 20211028
  2. TRIPTORELIN PAMOATE [Suspect]
     Active Substance: TRIPTORELIN PAMOATE
     Indication: Prostate cancer
     Dosage: DOSE AND STRENGTH: 11.25 MG (INJECTED INTO THE ABDOMEN)
     Route: 065
  3. DICLOFENAC [Concomitant]
     Active Substance: DICLOFENAC

REACTIONS (15)
  - Condition aggravated [Recovering/Resolving]
  - Back pain [Unknown]
  - Muscle atrophy [Recovering/Resolving]
  - Chills [Recovering/Resolving]
  - Intervertebral disc disorder [Unknown]
  - Asthenia [Recovering/Resolving]
  - Arthralgia [Recovering/Resolving]
  - Product administered at inappropriate site [Unknown]
  - Piloerection [Recovering/Resolving]
  - Oedema peripheral [Recovering/Resolving]
  - Walking aid user [Unknown]
  - Musculoskeletal discomfort [Recovering/Resolving]
  - Peripheral swelling [Recovering/Resolving]
  - Mood swings [Recovering/Resolving]
  - Gait disturbance [Recovering/Resolving]

NARRATIVE: CASE EVENT DATE: 20200801
